FAERS Safety Report 4921187-8 (Version None)
Quarter: 2006Q1

REPORT INFORMATION
  Report Type: 
  Country: None (occurrence: None)
  Receive Date: 20060217
  Receipt Date: 20060201
  Transmission Date: 20060701
  Serious: Yes (Hospitalization)
  Sender: FDA-Public Use
  Company Number: 2005-02038

PATIENT
  Age: 50 Year
  Sex: Female
  Weight: 50 kg

DRUGS (1)
  1. VELCADE [Suspect]
     Indication: MULTIPLE MYELOMA
     Dosage: 2.00 MG, 2/WEEK, INTRAVENOUS
     Route: 042
     Dates: start: 20050808, end: 20050921

REACTIONS (25)
  - ANAEMIA [None]
  - ANGIOMYOLIPOMA [None]
  - AREFLEXIA [None]
  - BALANCE DISORDER [None]
  - BLOOD ALBUMIN DECREASED [None]
  - BLOOD DISORDER [None]
  - BLOOD IMMUNOGLOBULIN G INCREASED [None]
  - COORDINATION ABNORMAL [None]
  - DIFFICULTY IN WALKING [None]
  - DIZZINESS [None]
  - DRUG TOXICITY [None]
  - EAR DISCOMFORT [None]
  - LYMPHOCYTE COUNT ABNORMAL [None]
  - MONOCLONAL IMMUNOGLOBULIN PRESENT [None]
  - NAUSEA [None]
  - NERVOUS SYSTEM DISORDER [None]
  - NEUTROPHIL COUNT DECREASED [None]
  - PROTEIN URINE PRESENT [None]
  - PYREXIA [None]
  - SCAR [None]
  - SHIFT TO THE LEFT [None]
  - SINUSITIS [None]
  - ULTRASOUND KIDNEY ABNORMAL [None]
  - VERTIGO [None]
  - WHITE BLOOD CELL COUNT DECREASED [None]
